FAERS Safety Report 4798314-9 (Version None)
Quarter: 2005Q4

REPORT INFORMATION
  Report Type: 
  Country: None (occurrence: None)
  Receive Date: 20051014
  Receipt Date: 20050825
  Transmission Date: 20060501
  Serious: Yes (Hospitalization)
  Sender: FDA-Public Use
  Company Number: HQWYE129426AUG05

PATIENT
  Sex: Female

DRUGS (4)
  1. ENBREL [Suspect]
     Indication: RHEUMATOID ARTHRITIS
     Route: 058
     Dates: start: 20050531, end: 20050715
  2. REMICADE [Suspect]
     Dosage: DOSE AND FREQUENCY NOT SPECIFIED
  3. PROGRAF [Concomitant]
     Route: 065
  4. METHOTREXATE [Concomitant]

REACTIONS (2)
  - OVARIAN NEOPLASM [None]
  - RASH GENERALISED [None]
